FAERS Safety Report 4530772-7 (Version None)
Quarter: 2004Q4

REPORT INFORMATION
  Report Type: 
  Country: None (occurrence: None)
  Receive Date: 20041216
  Receipt Date: 20041125
  Transmission Date: 20050328
  Serious: Yes (Hospitalization)
  Sender: FDA-Public Use
  Company Number: JP_040904404

PATIENT
  Age: 53 Year
  Sex: Male
  Weight: 84 kg

DRUGS (5)
  1. ZYPREXA [Suspect]
     Indication: DEPRESSION
     Dosage: 5 MG DAY
     Dates: start: 20040219, end: 20040830
  2. VALPROATE SODIUM [Concomitant]
  3. ROHYPNOL (FLUNITRAZEPAM EG) [Concomitant]
  4. AMOBAN (ZOPICLONE) [Concomitant]
  5. LITHIUM [Concomitant]

REACTIONS (3)
  - APLASTIC ANAEMIA [None]
  - MANIA [None]
  - PURPURA [None]
